FAERS Safety Report 9701773 (Version 2)
Quarter: 2013Q4

REPORT INFORMATION
  Report Type: Spontaneous
  Country: PT (occurrence: PT)
  Receive Date: 20131121
  Receipt Date: 20131125
  Transmission Date: 20140711
  Serious: Yes (Hospitalization, Disabling)
  Sender: FDA-Public Use
  Company Number: PT-SA-2013SA118670

PATIENT
  Age: 55 Year
  Sex: Female

DRUGS (2)
  1. MYOZYME [Suspect]
     Indication: GLYCOGEN STORAGE DISEASE TYPE II
     Route: 042
     Dates: start: 20081031
  2. ESCITALOPRAM [Concomitant]
     Route: 048
     Dates: start: 20110907

REACTIONS (4)
  - Cerebrovascular accident [Not Recovered/Not Resolved]
  - Monoplegia [Not Recovered/Not Resolved]
  - Carotid artery stenosis [Unknown]
  - Antibody test positive [Not Recovered/Not Resolved]
